FAERS Safety Report 9509784 (Version 1)
Quarter: 2013Q3

REPORT INFORMATION
  Report Type: Spontaneous
  Country: US (occurrence: US)
  Receive Date: 20130909
  Receipt Date: 20130909
  Transmission Date: 20140515
  Serious: No
  Sender: FDA-Public Use
  Company Number: US-BRISTOL-MYERS SQUIBB COMPANY-18854083

PATIENT
  Sex: Male

DRUGS (1)
  1. ABILIFY TABS [Suspect]
     Dosage: INTIALLY 5 MG AND THEN INCREASED TO 15MG THEN 20MG
     Route: 048

REACTIONS (1)
  - Medication error [Unknown]
